FAERS Safety Report 18107448 (Version 2)
Quarter: 2020Q3

REPORT INFORMATION
  Report Type: Spontaneous
  Country: US (occurrence: US)
  Receive Date: 20200804
  Receipt Date: 20200827
  Transmission Date: 20201103
  Serious: No
  Sender: FDA-Public Use
  Company Number: US-ASTRAZENECA-2020SE86806

PATIENT
  Sex: Male
  Weight: 86.2 kg

DRUGS (1)
  1. BYDUREON BCISE [Suspect]
     Active Substance: EXENATIDE
     Indication: TYPE 2 DIABETES MELLITUS
     Route: 058

REACTIONS (7)
  - Intentional device misuse [Unknown]
  - Drug dose omission by device [Unknown]
  - Injection site extravasation [Unknown]
  - Device leakage [Unknown]
  - Injection site mass [Not Recovered/Not Resolved]
  - Injection site haemorrhage [Unknown]
  - Insurance issue [Recovered/Resolved]
